FAERS Safety Report 26002340 (Version 2)
Quarter: 2025Q4

REPORT INFORMATION
  Report Type: Spontaneous
  Country: US (occurrence: US)
  Receive Date: 20251105
  Receipt Date: 20251112
  Transmission Date: 20260117
  Serious: No
  Sender: ARDELYX
  Company Number: US-ARDELYX-2025ARDX008073

PATIENT
  Sex: Female

DRUGS (3)
  1. IBSRELA [Suspect]
     Active Substance: TENAPANOR HYDROCHLORIDE
     Indication: Irritable bowel syndrome
     Dosage: 50 MG, BID
     Route: 048
     Dates: start: 202505
  2. IBSRELA [Suspect]
     Active Substance: TENAPANOR HYDROCHLORIDE
     Dosage: 50 MG, TWICE A WEEK
     Route: 048
     Dates: start: 2025
  3. Mag citrate [Concomitant]
     Indication: Product used for unknown indication
     Dosage: UNK, PRN
     Route: 065

REACTIONS (3)
  - Limb operation [Unknown]
  - Abdominal distension [Unknown]
  - Intentional underdose [Unknown]

NARRATIVE: CASE EVENT DATE: 20250101
